FAERS Safety Report 7659503-9 (Version None)
Quarter: 2011Q3

REPORT INFORMATION
  Report Type: 
  Country: None (occurrence: None)
  Receive Date: 20110805
  Receipt Date: 20110728
  Transmission Date: 20111222
  Serious: Yes (Hospitalization, Other)
  Sender: FDA-Public Use
  Company Number: US-ACTELION-A-US2011-46626

PATIENT

DRUGS (4)
  1. REVATIO [Concomitant]
  2. CALCIUM CHANNEL BLOCKERS [Concomitant]
  3. COUMADIN [Concomitant]
  4. TRACLEER [Suspect]
     Indication: PULMONARY ARTERIAL HYPERTENSION
     Dosage: UNK
     Route: 048
     Dates: start: 20101109

REACTIONS (10)
  - LUNG DISORDER [None]
  - PANCREATITIS [None]
  - BILIARY CIRRHOSIS PRIMARY [None]
  - LIVER FUNCTION TEST ABNORMAL [None]
  - HEPATIC PAIN [None]
  - HEPATITIS [None]
  - BLOOD LACTATE DEHYDROGENASE INCREASED [None]
  - CARDIAC FAILURE [None]
  - WEIGHT DECREASED [None]
  - FEELING ABNORMAL [None]
